FAERS Safety Report 5469670-3 (Version None)
Quarter: 2007Q3

REPORT INFORMATION
  Report Type: 
  Country: None (occurrence: None)
  Receive Date: 20070927
  Receipt Date: 20070917
  Transmission Date: 20080115
  Serious: Yes (Life-Threatening)
  Sender: FDA-Public Use
  Company Number: ZA-ROCHE-518479

PATIENT

DRUGS (2)
  1. KYTRIL [Suspect]
     Route: 042
  2. TAXANE [Concomitant]

REACTIONS (1)
  - CARDIAC ARREST [None]
